FAERS Safety Report 7116700-9 (Version None)
Quarter: 2010Q4

REPORT INFORMATION
  Report Type: 
  Country: None (occurrence: None)
  Receive Date: 20101122
  Receipt Date: 20101115
  Transmission Date: 20110411
  Serious: Yes (Other)
  Sender: FDA-Public Use
  Company Number: B0685531A

PATIENT
  Sex: Female

DRUGS (2)
  1. TYVERB [Suspect]
     Indication: BREAST CANCER
     Route: 048
  2. CAPECITABINE [Concomitant]
     Indication: BREAST CANCER

REACTIONS (8)
  - ANXIETY [None]
  - BLOOD CREATINE PHOSPHOKINASE INCREASED [None]
  - BLOOD URIC ACID INCREASED [None]
  - CYANOSIS [None]
  - GLOSSITIS [None]
  - PROTEINURIA [None]
  - RESPIRATORY DISORDER [None]
  - WEIGHT DECREASED [None]
